FAERS Safety Report 22289594 (Version 1)
Quarter: 2023Q2

REPORT INFORMATION
  Report Type: Report from Study
  Country: IL (occurrence: IL)
  Receive Date: 20230505
  Receipt Date: 20230505
  Transmission Date: 20230722
  Serious: Yes (Other)
  Sender: FDA-Public Use
  Company Number: IL-TAKEDA-2022TUS015377

PATIENT
  Age: 44 Year
  Sex: Female

DRUGS (1)
  1. VEDOLIZUMAB [Suspect]
     Active Substance: VEDOLIZUMAB
     Indication: Colitis
     Dosage: 108 MILLIGRAM, Q2WEEKS
     Route: 058
     Dates: start: 20180919

REACTIONS (14)
  - Colitis ulcerative [Not Recovered/Not Resolved]
  - Injection site haematoma [Recovering/Resolving]
  - Skin swelling [Not Recovered/Not Resolved]
  - Ear inflammation [Recovered/Resolved]
  - Productive cough [Recovered/Resolved]
  - COVID-19 [Recovered/Resolved]
  - Gastrooesophageal reflux disease [Recovered/Resolved]
  - Product dose omission issue [Unknown]
  - Wrong technique in product usage process [Unknown]
  - Ear infection [Not Recovered/Not Resolved]
  - Chest pain [Recovered/Resolved]
  - Rhinorrhoea [Recovered/Resolved]
  - Nasopharyngitis [Recovered/Resolved]
  - Pyrexia [Recovered/Resolved]

NARRATIVE: CASE EVENT DATE: 20220306
